FAERS Safety Report 16343471 (Version 1)
Quarter: 2019Q2

REPORT INFORMATION
  Report Type: Spontaneous
  Country: US (occurrence: US)
  Receive Date: 20190522
  Receipt Date: 20190522
  Transmission Date: 20190711
  Serious: No
  Sender: FDA-Public Use
  Company Number: US-MYLANLABS-2019M1043357

PATIENT
  Sex: Female
  Weight: 59 kg

DRUGS (1)
  1. CLOBETASOL PROPIONATE FOAM [Suspect]
     Active Substance: CLOBETASOL PROPIONATE
     Indication: SKIN EXFOLIATION
     Dosage: UNK
     Route: 061
     Dates: start: 2019, end: 201904

REACTIONS (3)
  - Application site irritation [Unknown]
  - Application site pain [Unknown]
  - Product quality issue [Unknown]
